FAERS Safety Report 5643027-4 (Version None)
Quarter: 2008Q1

REPORT INFORMATION
  Report Type: 
  Country: None (occurrence: None)
  Receive Date: 20080227
  Receipt Date: 20080227
  Transmission Date: 20080703
  Serious: Yes (Other)
  Sender: FDA-Public Use
  Company Number: None

PATIENT
  Age: 54 Year
  Sex: Female
  Weight: 79.3795 kg

DRUGS (1)
  1. LEVAQUIN [Suspect]
     Indication: SINUSITIS
     Dosage: 500 MG DAILY PO
     Route: 048
     Dates: start: 20080131, end: 20080206

REACTIONS (6)
  - ANXIETY [None]
  - INSOMNIA [None]
  - MUSCULOSKELETAL PAIN [None]
  - NONSPECIFIC REACTION [None]
  - PALPITATIONS [None]
  - PARAESTHESIA [None]
